FAERS Safety Report 8104815-8 (Version None)
Quarter: 2012Q1

REPORT INFORMATION
  Report Type: 
  Country: None (occurrence: None)
  Receive Date: 20120201
  Receipt Date: 20120130
  Transmission Date: 20120608
  Serious: No
  Sender: FDA-Public Use
  Company Number: US-BAYER-2012-010068

PATIENT
  Sex: Female

DRUGS (6)
  1. FUROSEMIDE [Concomitant]
  2. ZEBETA [Concomitant]
  3. LOVAZA [Concomitant]
  4. COZAAR [Concomitant]
  5. ACIDOPHILUS [Concomitant]
  6. ALEVE (CAPLET) [Suspect]
     Indication: ARTHRITIS
     Dosage: 2 DF, BID
     Route: 048

REACTIONS (2)
  - RASH [None]
  - BLOOD PRESSURE INCREASED [None]
